FAERS Safety Report 10253220 (Version 1)
Quarter: 2014Q2

REPORT INFORMATION
  Report Type: Spontaneous
  Country: US (occurrence: US)
  Receive Date: 20140623
  Receipt Date: 20140623
  Transmission Date: 20141212
  Serious: No
  Sender: FDA-Public Use
  Company Number: US-ZOGENIX, INC.-2011ZX000446

PATIENT
  Sex: Female
  Weight: 95.34 kg

DRUGS (3)
  1. SUMAVEL DOSEPRO [Suspect]
     Indication: MIGRAINE
  2. ZONEGRAN [Concomitant]
     Indication: MIGRAINE
  3. METHIMAZOLE [Concomitant]
     Indication: BASEDOW^S DISEASE

REACTIONS (4)
  - Injection site haemorrhage [Recovered/Resolved]
  - Injection site bruising [Recovered/Resolved]
  - Device malfunction [Unknown]
  - Accidental exposure to product [Recovered/Resolved]
